FAERS Safety Report 11100632 (Version 1)
Quarter: 2015Q2

REPORT INFORMATION
  Report Type: Spontaneous
  Country: MY (occurrence: MY)
  Receive Date: 20150508
  Receipt Date: 20150508
  Transmission Date: 20150821
  Serious: Yes (Hospitalization)
  Sender: FDA-Public Use
  Company Number: MY-PFIZER INC-2015158993

PATIENT
  Age: 58 Year
  Sex: Female

DRUGS (5)
  1. INLYTA [Suspect]
     Active Substance: AXITINIB
     Dosage: 12 MG, DAILY (5 MG ONCE AT MORNING AND 7 MG ONCE AT NIGHT)
     Dates: end: 2015
  2. DENOSUMAB [Concomitant]
     Active Substance: DENOSUMAB
  3. ZOMETA [Concomitant]
     Active Substance: ZOLEDRONIC ACID
     Indication: RENAL CELL CARCINOMA
  4. OMEPRAZOLE. [Concomitant]
     Active Substance: OMEPRAZOLE
  5. INLYTA [Suspect]
     Active Substance: AXITINIB
     Indication: RENAL CELL CARCINOMA
     Dosage: 5 MG, 2X/DAY
     Dates: start: 2014

REACTIONS (17)
  - Renal cell carcinoma [Unknown]
  - Nausea [Unknown]
  - Abdominal pain [Unknown]
  - Nodule [Unknown]
  - Lethargy [Unknown]
  - Diarrhoea [Unknown]
  - Weight decreased [Unknown]
  - Disease progression [Unknown]
  - Flatulence [Unknown]
  - Dizziness [Unknown]
  - Flank pain [Unknown]
  - Myalgia [Unknown]
  - Chronic gastritis [Unknown]
  - Abdominal rigidity [Unknown]
  - Decreased appetite [Unknown]
  - Abdominal discomfort [Unknown]
  - Palmar-plantar erythrodysaesthesia syndrome [Unknown]

NARRATIVE: CASE EVENT DATE: 2014
